FAERS Safety Report 8484160-1 (Version None)
Quarter: 2012Q3

REPORT INFORMATION
  Report Type: 
  Country: None (occurrence: None)
  Receive Date: 20120703
  Receipt Date: 20120625
  Transmission Date: 20120928
  Serious: Yes (Hospitalization, Other)
  Sender: FDA-Public Use
  Company Number: US-BAYER-2012-062333

PATIENT
  Age: 41 Year
  Sex: Female
  Weight: 81.633 kg

DRUGS (31)
  1. OXYCODONE HCL AND ACETAMINOPHEN [Concomitant]
     Indication: ANALGESIC THERAPY
     Dosage: 5/325 MG, PRN
     Dates: start: 20110420
  2. ZYRTEC [Concomitant]
     Dosage: UNK UNK, PRN
     Dates: start: 19750101
  3. METRONIDAZOLE [Concomitant]
     Dosage: 500 MG, UNK
     Dates: start: 20110301
  4. FLAGYL [Concomitant]
  5. YAZ [Suspect]
     Indication: MENORRHAGIA
  6. YAZ [Suspect]
     Indication: ACNE
  7. EFFEXOR XR [Concomitant]
     Indication: DEPRESSION
     Dosage: UNK
     Dates: start: 20100101
  8. ABILIFY [Concomitant]
     Indication: DEPRESSION
     Dosage: UNK
     Dates: start: 20100101
  9. PRAVACHOL [Concomitant]
     Indication: BLOOD CHOLESTEROL INCREASED
     Dosage: 1 TABLET, QD
     Dates: start: 20100101, end: 20110101
  10. METRONIDAZOLE [Concomitant]
     Dosage: 500 MG, UNK
     Dates: start: 20110330
  11. CIPROFLOXACIN HYDROCHLORIDE [Concomitant]
     Dosage: 500 MG, UNK
     Dates: start: 20110301
  12. DROSPIRENONE AND ETHINYL ESTRADIOL [Suspect]
     Indication: PREMENSTRUAL SYNDROME
  13. DROSPIRENONE AND ETHINYL ESTRADIOL [Suspect]
     Indication: MENORRHAGIA
  14. DROSPIRENONE AND ETHINYL ESTRADIOL [Suspect]
     Indication: ACNE
  15. VENLAFAXINE [Concomitant]
     Indication: DEPRESSION
     Dosage: XR 150 MG, QD
     Dates: start: 20100101
  16. TRAMADOL HCL [Concomitant]
     Indication: ANALGESIC THERAPY
     Dosage: UNK UNK, PRN
     Dates: start: 20100101, end: 20110101
  17. CIPROFLOXACIN HYDROCHLORIDE [Concomitant]
     Dosage: 500 MG, UNK
     Dates: start: 20110330
  18. DROSPIRENONE AND ETHINYL ESTRADIOL [Suspect]
     Indication: DYSMENORRHOEA
  19. YAZ [Suspect]
     Indication: CONTRACEPTION
  20. SEROQUEL [Concomitant]
     Indication: DEPRESSION
     Dosage: 50 MG, QD
     Dates: start: 20100501, end: 20110101
  21. FLUCONAZOLE [Concomitant]
     Dosage: 150 MG, UNK
     Dates: start: 20110301
  22. HYDROCODONE BITARTRATE AND ACETAMINOPHEN [Concomitant]
     Dosage: UNK
     Dates: start: 20110301
  23. DROSPIRENONE AND ETHINYL ESTRADIOL [Suspect]
     Indication: CONTRACEPTION
     Dosage: UNK
     Dates: start: 20100810, end: 20110418
  24. BUPROPION HCL [Concomitant]
     Dosage: SR 150 MG, UNK
     Dates: start: 20110117
  25. YAZ [Suspect]
     Indication: DYSMENORRHOEA
  26. HYDROCODONE [Concomitant]
     Indication: ANALGESIC THERAPY
     Dosage: UNK UNK, PRN
     Dates: start: 20110101
  27. PERCOCET [Concomitant]
     Indication: PAIN
  28. YAZ [Suspect]
     Indication: PREMENSTRUAL SYNDROME
  29. OMEPRAZOLE [Concomitant]
     Indication: GASTROOESOPHAGEAL REFLUX DISEASE
     Dosage: ONE CAPSULE QD
     Dates: start: 19920101
  30. PROPRANOLOL [Concomitant]
     Indication: HYPERTENSION
     Dosage: LA 60 MG,1 TABLET QD
     Dates: start: 20100101, end: 20110101
  31. SUPREP BOWEL PREP KIT [Concomitant]
     Dosage: UNK
     Dates: start: 20110329

REACTIONS (6)
  - LUNG NEOPLASM [None]
  - CHEST PAIN [None]
  - INJURY [None]
  - DEEP VEIN THROMBOSIS [None]
  - PULMONARY EMBOLISM [None]
  - ABDOMINAL PAIN [None]
